FAERS Safety Report 24553935 (Version 1)
Quarter: 2024Q4

REPORT INFORMATION
  Report Type: Other
  Country: US (occurrence: US)
  Receive Date: 20241028
  Receipt Date: 20241028
  Transmission Date: 20250115
  Serious: No
  Sender: GLENMARK
  Company Number: US-GLENMARK PHARMACEUTICALS-2024GMK091523

PATIENT

DRUGS (2)
  1. CARVEDILOL [Suspect]
     Active Substance: CARVEDILOL
     Indication: Palpitations
     Dosage: UNK
     Route: 065
     Dates: start: 202203
  2. CARVEDILOL [Suspect]
     Active Substance: CARVEDILOL
     Indication: Hypertension

REACTIONS (15)
  - Gastrointestinal disorder [Unknown]
  - Abdominal distension [Unknown]
  - Eczema [Unknown]
  - Rash [Unknown]
  - Dyspepsia [Unknown]
  - Pallor [Unknown]
  - Inflammation [Unknown]
  - Periorbital swelling [Unknown]
  - Constipation [Unknown]
  - Hand dermatitis [Unknown]
  - Arthralgia [Unknown]
  - Fatigue [Unknown]
  - Product use in unapproved indication [Unknown]
  - Product substitution issue [Unknown]
  - Product formulation issue [Unknown]
